FAERS Safety Report 9219880 (Version 1)
Quarter: 2013Q2

REPORT INFORMATION
  Report Type: Spontaneous
  Country: US (occurrence: US)
  Receive Date: 20130409
  Receipt Date: 20130409
  Transmission Date: 20140414
  Serious: No
  Sender: FDA-Public Use
  Company Number: US-009507513-1304USA003730

PATIENT
  Age: 18 Year
  Sex: Female
  Weight: 50.79 kg

DRUGS (1)
  1. NEXPLANON [Suspect]
     Indication: CONTRACEPTION
     Dosage: 1 DF, EVERY 3 YEARS
     Route: 059
     Dates: start: 20120906

REACTIONS (5)
  - Dysmenorrhoea [Unknown]
  - Dizziness [Unknown]
  - Vomiting [Unknown]
  - Amenorrhoea [Recovered/Resolved]
  - Metrorrhagia [Unknown]
